FAERS Safety Report 15293618 (Version 2)
Quarter: 2018Q3

REPORT INFORMATION
  Report Type: Spontaneous
  Country: US (occurrence: US)
  Receive Date: 20180820
  Receipt Date: 20180824
  Transmission Date: 20181010
  Serious: No
  Sender: FDA-Public Use
  Company Number: US-CELGENEUS-USA-20180804826

PATIENT
  Age: 58 Year
  Sex: Female

DRUGS (6)
  1. METHIMAZOLE. [Concomitant]
     Active Substance: METHIMAZOLE
     Indication: THYROID DISORDER
     Route: 048
  2. CLOBETASOL [Concomitant]
     Active Substance: CLOBETASOL
     Indication: PSORIASIS
     Dosage: .1 PERCENT
     Route: 065
  3. OTEZLA [Suspect]
     Active Substance: APREMILAST
     Indication: PSORIASIS
     Dosage: STARTER PACK
     Route: 048
     Dates: start: 20180314
  4. HYDROXYZINE [Concomitant]
     Active Substance: HYDROXYZINE HYDROCHLORIDE
     Indication: PRURITUS
     Dosage: 25?50 MILLIGRAM
     Route: 065
     Dates: start: 20180518
  5. OTEZLA [Suspect]
     Active Substance: APREMILAST
     Dosage: 60 MILLIGRAM
     Route: 048
     Dates: start: 2018, end: 20180814
  6. TRIAMCINOLONE [Concomitant]
     Active Substance: TRIAMCINOLONE
     Indication: PSORIASIS
     Dosage: .02 PERCENT
     Route: 065

REACTIONS (3)
  - Diarrhoea [Recovered/Resolved]
  - Vomiting [Recovered/Resolved]
  - Nausea [Recovered/Resolved]

NARRATIVE: CASE EVENT DATE: 201803
